FAERS Safety Report 11358581 (Version 1)
Quarter: 2015Q3

REPORT INFORMATION
  Report Type: Spontaneous
  Country: US (occurrence: US)
  Receive Date: 20150803
  Receipt Date: 20150803
  Transmission Date: 20151125
  Serious: Yes (Hospitalization)
  Sender: FDA-Public Use
  Company Number: US-ELI_LILLY_AND_COMPANY-US200904002845

PATIENT
  Age: 29 Year
  Sex: Female
  Weight: 246 kg

DRUGS (10)
  1. VITAMINS NOS [Concomitant]
     Active Substance: VITAMINS
     Dosage: 1 D/F, 2/D
     Dates: start: 20090309
  2. ZYPREXA [Suspect]
     Active Substance: OLANZAPINE
     Dosage: 10 MG, UNK
     Dates: start: 20081111, end: 20081125
  3. PRISTIQ EXTENDED RELEASE [Concomitant]
     Active Substance: DESVENLAFAXINE SUCCINATE
     Indication: BIPOLAR DISORDER
     Dosage: 100 MG, DAILY (1/D)
     Dates: start: 20081024
  4. ZYPREXA [Suspect]
     Active Substance: OLANZAPINE
     Indication: BIPOLAR DISORDER
     Dosage: 20 MG, UNK
     Dates: start: 20081105, end: 20081111
  5. METHADONE [Concomitant]
     Active Substance: METHADONE HYDROCHLORIDE
  6. CHANTIX                            /05703001/ [Concomitant]
     Indication: TOBACCO USER
     Dosage: 1 D/F, UNK
     Dates: start: 20070302
  7. ZYPREXA [Suspect]
     Active Substance: OLANZAPINE
     Dosage: 160 MG, UNK
     Dates: start: 20090309, end: 20090310
  8. ZYPREXA [Suspect]
     Active Substance: OLANZAPINE
     Dosage: 1 D/F, UNK
     Dates: start: 20090102
  9. AMBIEN [Concomitant]
     Active Substance: ZOLPIDEM TARTRATE
     Indication: SLEEP DISORDER
     Dosage: 10 MG, UNK
     Dates: start: 20081024, end: 20090310
  10. TOPAMAX [Concomitant]
     Active Substance: TOPIRAMATE
     Indication: MIGRAINE
     Dosage: 600 MG, EACH EVENING
     Dates: start: 1999

REACTIONS (3)
  - Overdose [Recovered/Resolved]
  - Delirium [Recovered/Resolved]
  - Weight increased [Unknown]

NARRATIVE: CASE EVENT DATE: 20090309
